FAERS Safety Report 12114296 (Version 1)
Quarter: 2016Q1

REPORT INFORMATION
  Report Type: Spontaneous
  Country: US (occurrence: US)
  Receive Date: 20160225
  Receipt Date: 20160225
  Transmission Date: 20160526
  Serious: Yes (Other)
  Sender: FDA-Public Use
  Company Number: US-SA-2016SA034313

PATIENT
  Sex: Female

DRUGS (11)
  1. CYCLOBENZAPRINE HYDROCHLORIDE. [Concomitant]
     Active Substance: CYCLOBENZAPRINE HYDROCHLORIDE
  2. LEFLUNOMIDE. [Suspect]
     Active Substance: LEFLUNOMIDE
     Indication: RHEUMATOID ARTHRITIS
     Route: 048
  3. POTASSIUM CHLORIDE. [Concomitant]
     Active Substance: POTASSIUM CHLORIDE
  4. ROSUVASTATIN CALCIUM. [Concomitant]
     Active Substance: ROSUVASTATIN CALCIUM
  5. RITUXIMAB [Concomitant]
     Active Substance: RITUXIMAB
     Dosage: INFUSION
  6. ESOMEPRAZOLE MAGNESIUM. [Concomitant]
     Active Substance: ESOMEPRAZOLE MAGNESIUM
  7. MORPHINE SULFATE. [Concomitant]
     Active Substance: MORPHINE SULFATE
  8. HYDROMORPHONE HYDROCHLORIDE. [Concomitant]
     Active Substance: HYDROMORPHONE HYDROCHLORIDE
  9. DULOXETINE HYDROCHLORIDE. [Concomitant]
     Active Substance: DULOXETINE HYDROCHLORIDE
  10. INSULIN [Concomitant]
     Active Substance: INSULIN NOS
  11. BENAZEPRIL HYDROCHLORIDE. [Concomitant]
     Active Substance: BENAZEPRIL HYDROCHLORIDE

REACTIONS (7)
  - Keratoacanthoma [Recovered/Resolved]
  - Skin lesion [Recovered/Resolved]
  - Hyperkeratosis [Recovered/Resolved]
  - Papule [Recovered/Resolved]
  - Seborrhoeic keratosis [Recovered/Resolved]
  - Skin ulcer [Recovered/Resolved]
  - Rash pustular [Recovered/Resolved]
